FAERS Safety Report 21927158 (Version 2)
Quarter: 2023Q1

REPORT INFORMATION
  Report Type: Spontaneous
  Country: JP (occurrence: JP)
  Receive Date: 20230130
  Receipt Date: 20230331
  Transmission Date: 20230418
  Serious: Yes (Death, Other)
  Sender: FDA-Public Use
  Company Number: JP-ONO-2023JP001501

PATIENT

DRUGS (2)
  1. ONGENTYS [Suspect]
     Active Substance: OPICAPONE
     Indication: Parkinson^s disease
     Dosage: UNK, UNKNOWN
     Route: 048
  2. LEVODOPA [Concomitant]
     Active Substance: LEVODOPA
     Dosage: UNKNOWN

REACTIONS (1)
  - Aortic dissection [Fatal]
